FAERS Safety Report 5958674-X (Version None)
Quarter: 2008Q4

REPORT INFORMATION
  Report Type: 
  Country: None (occurrence: None)
  Receive Date: 20081110
  Receipt Date: 20080929
  Transmission Date: 20090506
  Serious: No
  Sender: FDA-Public Use
  Company Number: 2008US002648

PATIENT
  Age: 69 Year
  Sex: Female

DRUGS (1)
  1. LEXISCAN [Suspect]
     Indication: SCAN MYOCARDIAL PERFUSION
     Dates: start: 20080929, end: 20080929

REACTIONS (4)
  - DIARRHOEA [None]
  - FEELING JITTERY [None]
  - NAUSEA [None]
  - PAIN IN EXTREMITY [None]
